FAERS Safety Report 21690670 (Version 4)
Quarter: 2023Q1

REPORT INFORMATION
  Report Type: Spontaneous
  Country: US (occurrence: US)
  Receive Date: 20221206
  Receipt Date: 20230315
  Transmission Date: 20230418
  Serious: No
  Sender: FDA-Public Use
  Company Number: US-Blueprint Medicines Corporation-617

PATIENT
  Age: 38 Year
  Sex: Male

DRUGS (2)
  1. AYVAKIT [Suspect]
     Active Substance: AVAPRITINIB
     Indication: Gastrointestinal stromal tumour
     Route: 065
     Dates: start: 20210701
  2. AYVAKIT [Suspect]
     Active Substance: AVAPRITINIB
     Route: 065
     Dates: start: 20210701

REACTIONS (10)
  - Unevaluable event [Unknown]
  - Nausea [Recovering/Resolving]
  - Abdominal pain upper [Recovering/Resolving]
  - Hair colour changes [Recovering/Resolving]
  - Tryptase increased [Unknown]
  - Hepatic enzyme abnormal [Unknown]
  - Abdominal distension [Unknown]
  - Folliculitis [Unknown]
  - Pustule [Unknown]
  - Acne [Unknown]

NARRATIVE: CASE EVENT DATE: 20221202
